FAERS Safety Report 22646805 (Version 5)
Quarter: 2025Q3

REPORT INFORMATION
  Report Type: Spontaneous
  Country: EU (occurrence: EU)
  Receive Date: 20230627
  Receipt Date: 20250708
  Transmission Date: 20251020
  Serious: Yes (Death, Other)
  Sender: GLENMARK
  Company Number: EU-GLENMARK PHARMACEUTICALS-2023GMK082796

PATIENT
  Age: 31 Year
  Sex: Female

DRUGS (2)
  1. RYALTRIS [Suspect]
     Active Substance: MOMETASONE FUROATE MONOHYDRATE\OLOPATADINE HYDROCHLORIDE
     Indication: Rhinitis allergic
     Dosage: 2 DOSAGE FORM, BID (TWO ACTUATIONS IN EACH NOSTRIL TWICE DAILY (MORNING AND EVENING))
     Route: 045
  2. RYALTRIS [Suspect]
     Active Substance: MOMETASONE FUROATE MONOHYDRATE\OLOPATADINE HYDROCHLORIDE
     Dosage: RESTARTED AGAIN, 2 DOSAGE FORM, BID (TWO ACTUATIONS IN EACH NOSTRIL TWICE DAILY (MORNING AND EVENING
     Route: 045

REACTIONS (6)
  - Acute pulmonary oedema [Fatal]
  - Left ventricular hypertrophy [Fatal]
  - Sudden cardiac death [Fatal]
  - Cardiac steatosis [Fatal]
  - Fibrosis [Fatal]
  - Cardiac arrest [Fatal]

NARRATIVE: CASE EVENT DATE: 20230601
